FAERS Safety Report 7108850-8 (Version None)
Quarter: 2010Q4

REPORT INFORMATION
  Report Type: 
  Country: None (occurrence: None)
  Receive Date: 20101117
  Receipt Date: 20101104
  Transmission Date: 20110411
  Serious: Yes (Hospitalization)
  Sender: FDA-Public Use
  Company Number: US-US-EMD SERONO, INC.-7017149

PATIENT
  Sex: Female
  Weight: 91 kg

DRUGS (18)
  1. CLADRIBINE [Suspect]
     Indication: MULTIPLE SCLEROSIS
     Route: 048
     Dates: start: 20090615, end: 20090619
  2. CLADRIBINE [Suspect]
     Route: 048
     Dates: start: 20090714, end: 20090718
  3. CLADRIBINE [Suspect]
     Route: 048
     Dates: start: 20100510, end: 20100514
  4. CLADRIBINE [Suspect]
     Route: 048
     Dates: start: 20100715, end: 20100719
  5. REBIF [Suspect]
     Indication: MULTIPLE SCLEROSIS
     Route: 058
     Dates: start: 19980101
  6. WELLBUTRIN [Concomitant]
     Indication: DEPRESSION
     Route: 048
     Dates: start: 20100105, end: 20100101
  7. WELLBUTRIN [Concomitant]
     Route: 048
     Dates: start: 20100802
  8. HYDROCODONE + ACCETAMINOPHEN [Concomitant]
     Indication: HEADACHE
     Route: 048
     Dates: start: 20100422
  9. MIDOL (OTC) [Concomitant]
     Indication: DYSMENORRHOEA
     Route: 048
     Dates: start: 20090707
  10. CALCIUM WITH VITAMIN D SUPPLEMENT [Concomitant]
     Indication: OSTEOPOROSIS
     Route: 048
     Dates: start: 20100702
  11. CALCIUM WITH VITAMIN D SUPPLEMENT [Concomitant]
     Route: 048
     Dates: start: 20090530
  12. CLARITIN-D [Concomitant]
     Indication: SEASONAL ALLERGY
     Route: 048
     Dates: start: 20100201
  13. ONE-A-DAY VITAMIN [Concomitant]
     Indication: VITAMIN SUPPLEMENTATION
     Route: 048
     Dates: start: 20100804
  14. EXCEDRIN (MIGRAINE) [Concomitant]
     Indication: HEADACHE
     Route: 048
     Dates: start: 20090716
  15. MIRALAX [Concomitant]
     Indication: CONSTIPATION
     Route: 048
     Dates: start: 19940101
  16. HEPARIN SODIUM [Concomitant]
     Indication: CENTRAL VENOUS CATHETERISATION
     Route: 040
     Dates: start: 20090630
  17. VITAMIN D [Concomitant]
     Indication: VITAMIN SUPPLEMENTATION
     Route: 048
     Dates: start: 20090530
  18. LUNESTA [Concomitant]
     Indication: INSOMNIA

REACTIONS (2)
  - GRAND MAL CONVULSION [None]
  - STATUS EPILEPTICUS [None]
